FAERS Safety Report 11814110 (Version 1)
Quarter: 2015Q4

REPORT INFORMATION
  Report Type: Report from Study
  Country: US (occurrence: US)
  Receive Date: 20151209
  Receipt Date: 20151209
  Transmission Date: 20160305
  Serious: Yes (Other)
  Sender: FDA-Public Use
  Company Number: US-SA-2015SA040302

PATIENT
  Age: 59 Year
  Sex: Female

DRUGS (1)
  1. LEMTRADA [Suspect]
     Active Substance: ALEMTUZUMAB
     Indication: MULTIPLE SCLEROSIS
     Dosage: 09-MAR TO 13-MAR
     Route: 041
     Dates: start: 20150309, end: 20150313

REACTIONS (12)
  - Musculoskeletal chest pain [Unknown]
  - Memory impairment [Not Recovered/Not Resolved]
  - Laceration [Unknown]
  - Headache [Unknown]
  - Diabetes mellitus [Not Recovered/Not Resolved]
  - Contusion [Unknown]
  - Fall [Unknown]
  - Depressed mood [Not Recovered/Not Resolved]
  - Spinal pain [Unknown]
  - Back pain [Unknown]
  - Nervousness [Unknown]
  - Dizziness [Unknown]

NARRATIVE: CASE EVENT DATE: 2015
